FAERS Safety Report 18338995 (Version 1)
Quarter: 2020Q4

REPORT INFORMATION
  Report Type: Spontaneous
  Country: US (occurrence: US)
  Receive Date: 20201002
  Receipt Date: 20201002
  Transmission Date: 20210113
  Serious: Yes (Life-Threatening, Disabling, Other)
  Sender: FDA-Public Use
  Company Number: None

PATIENT
  Age: 47 Year
  Sex: Female
  Weight: 67.5 kg

DRUGS (4)
  1. RISPERIDONE. [Concomitant]
     Active Substance: RISPERIDONE
  2. HYDROXYZINE [Concomitant]
     Active Substance: HYDROXYZINE HYDROCHLORIDE
  3. CITALOPRAM [Suspect]
     Active Substance: CITALOPRAM HYDROBROMIDE
     Indication: DEPRESSION
     Dosage: ?          QUANTITY:90 TABLET(S);?
     Route: 048
     Dates: start: 20200825, end: 20200903
  4. OXYCARBAZEPINE [Concomitant]
     Active Substance: OXCARBAZEPINE

REACTIONS (16)
  - Vein disorder [None]
  - Muscle spasms [None]
  - Scratch [None]
  - Nervous system disorder [None]
  - Anxiety [None]
  - Balance disorder [None]
  - Formication [None]
  - Abnormal dreams [None]
  - Contusion [None]
  - Tinnitus [None]
  - Abdominal pain upper [None]
  - Swelling [None]
  - Hyperhidrosis [None]
  - Muscle twitching [None]
  - Skin disorder [None]
  - Palpitations [None]

NARRATIVE: CASE EVENT DATE: 20200825
